FAERS Safety Report 18345800 (Version 1)
Quarter: 2020Q4

REPORT INFORMATION
  Report Type: Spontaneous
  Country: DK (occurrence: DK)
  Receive Date: 20201005
  Receipt Date: 20201005
  Transmission Date: 20210114
  Serious: Yes (Hospitalization)
  Sender: FDA-Public Use
  Company Number: DK-ELI_LILLY_AND_COMPANY-DK202009010954

PATIENT
  Age: 56 Year
  Sex: Male

DRUGS (8)
  1. TALTZ [Suspect]
     Active Substance: IXEKIZUMAB
     Dosage: 80 MG, EVERY 4 WEEKS
     Route: 058
  2. NIZORAL [Concomitant]
     Active Substance: KETOCONAZOLE
     Indication: PSORIASIS
     Dosage: 2 DOSAGE FORM, WEEKLY (1/W)
     Route: 003
     Dates: start: 20200224
  3. ENSTILAR [Concomitant]
     Active Substance: BETAMETHASONE DIPROPIONATE\CALCIPOTRIENE HYDRATE
     Indication: PSORIASIS
     Dosage: STRENGTH: 50MICROGRAM/G+0,5MG/G
     Route: 003
     Dates: start: 20180424
  4. TALTZ [Suspect]
     Active Substance: IXEKIZUMAB
     Indication: PSORIASIS
     Dosage: 80 MG, EVERY TWO WEEKS
     Route: 058
     Dates: start: 20200224
  5. XENICAL [Concomitant]
     Active Substance: ORLISTAT
     Indication: OVERWEIGHT
     Dosage: 360 MG, DAILY
     Route: 048
     Dates: start: 20200511
  6. DERMOVAT [CLOBETASOL PROPIONATE] [Concomitant]
     Indication: PSORIASIS
     Dosage: STRENGTH: 0,5MG/G
     Route: 003
     Dates: start: 20190320
  7. DICLOFENAC [Concomitant]
     Active Substance: DICLOFENAC
     Indication: PAIN
     Dosage: 150 MG, DAILY
     Route: 048
     Dates: start: 20200427
  8. DIPROSALIC [Concomitant]
     Active Substance: BETAMETHASONE DIPROPIONATE
     Indication: PSORIASIS
     Dosage: STRENGTH: 0,5+30MG/G
     Route: 003
     Dates: start: 20170925

REACTIONS (3)
  - Inappropriate schedule of product administration [Unknown]
  - Cerebral infarction [Unknown]
  - Hemiparesis [Recovering/Resolving]

NARRATIVE: CASE EVENT DATE: 20200730
